FAERS Safety Report 21955970 (Version 9)
Quarter: 2024Q4

REPORT INFORMATION
  Report Type: Report from Study
  Country: CA (occurrence: CA)
  Receive Date: 20230206
  Receipt Date: 20241203
  Transmission Date: 20250114
  Serious: Yes (Hospitalization, Other)
  Sender: TAKEDA
  Company Number: CA-TAKEDA-2023TUS012355

PATIENT
  Age: 41 Year
  Sex: Female

DRUGS (6)
  1. VEDOLIZUMAB [Suspect]
     Active Substance: VEDOLIZUMAB
     Indication: Crohn^s disease
     Dosage: 300 MILLIGRAM
  2. VEDOLIZUMAB [Suspect]
     Active Substance: VEDOLIZUMAB
     Indication: Crohn^s disease
     Dosage: 108 MILLIGRAM, Q2WEEKS
     Dates: start: 20230511
  3. FENTANYL [Concomitant]
     Active Substance: FENTANYL
     Dosage: UNK
  4. DILAUDID [Concomitant]
     Active Substance: HYDROMORPHONE HYDROCHLORIDE
     Dosage: UNK
  5. NABILONE [Concomitant]
     Active Substance: NABILONE
     Dosage: UNK
  6. KETAMINE [Concomitant]
     Active Substance: KETAMINE
     Dosage: UNK UNK, 1/WEEK

REACTIONS (16)
  - Intestinal anastomosis complication [Unknown]
  - Crohn^s disease [Unknown]
  - Intestinal obstruction [Recovered/Resolved]
  - Faecaloma [Unknown]
  - Impaired gastric emptying [Unknown]
  - Clostridium difficile infection [Unknown]
  - Pneumonia aspiration [Unknown]
  - Device dislocation [Unknown]
  - Wound cellulitis [Unknown]
  - Stoma site infection [Recovering/Resolving]
  - Fibromyalgia [Unknown]
  - Quality of life decreased [Unknown]
  - Adrenal disorder [Unknown]
  - Faeces soft [Unknown]
  - Diarrhoea [Unknown]
  - Abdominal pain [Unknown]

NARRATIVE: CASE EVENT DATE: 20240229
